FAERS Safety Report 8311772-8 (Version None)
Quarter: 2012Q2

REPORT INFORMATION
  Report Type: 
  Country: None (occurrence: None)
  Receive Date: 20120425
  Receipt Date: 20120419
  Transmission Date: 20120825
  Serious: Yes (Hospitalization, Other)
  Sender: FDA-Public Use
  Company Number: PHHY2012MX034094

PATIENT
  Sex: Female

DRUGS (6)
  1. ENCIME [Concomitant]
     Dosage: UNK
  2. GALVUS MET [Suspect]
     Indication: DIABETES MELLITUS
     Dosage: 2 TABLETS DAILY
     Dates: start: 20120201
  3. PANCLASA [Concomitant]
     Dosage: UNK
  4. EXFORGE [Suspect]
     Indication: HYPERTENSION
     Dosage: 1 TABLETS (160/10 MG) DAILY
     Dates: start: 20120301, end: 20120401
  5. EXFORGE [Suspect]
     Dosage: 2 TABLETS (160/10 MG) DAILY
     Dates: start: 20120401
  6. TEOCTACIL [Concomitant]
     Dosage: UNK

REACTIONS (4)
  - BLOOD PRESSURE FLUCTUATION [None]
  - CHOLELITHIASIS [None]
  - BLOOD GLUCOSE FLUCTUATION [None]
  - BLADDER PAIN [None]
